FAERS Safety Report 21074841 (Version 3)
Quarter: 2022Q3

REPORT INFORMATION
  Report Type: Spontaneous
  Country: IT (occurrence: IT)
  Receive Date: 20220713
  Receipt Date: 20220916
  Transmission Date: 20221027
  Serious: Yes (Hospitalization, Other)
  Sender: FDA-Public Use
  Company Number: IT-SA-SAC20220712000987

PATIENT
  Age: 77 Year
  Sex: Female
  Weight: 41 kg

DRUGS (1)
  1. SARCLISA [Suspect]
     Active Substance: ISATUXIMAB-IRFC
     Indication: Plasma cell myeloma
     Dosage: 710 MG
     Dates: start: 20220705, end: 20220705

REACTIONS (8)
  - Anaphylactic reaction [Recovered/Resolved]
  - Respiratory failure [Recovered/Resolved]
  - Erythema [Recovered/Resolved]
  - Bronchostenosis [Recovered/Resolved]
  - Tachycardia [Recovered/Resolved]
  - Hypertension [Recovered/Resolved]
  - Laryngospasm [Recovered/Resolved]
  - Bronchospasm [Recovered/Resolved]

NARRATIVE: CASE EVENT DATE: 20220705
